FAERS Safety Report 7288173-7 (Version None)
Quarter: 2011Q1

REPORT INFORMATION
  Report Type: 
  Country: None (occurrence: None)
  Receive Date: 20110211
  Receipt Date: 20110113
  Transmission Date: 20110831
  Serious: Yes (Death, Hospitalization)
  Sender: FDA-Public Use
  Company Number: US-ROCHE-696454

PATIENT

DRUGS (2)
  1. SORAFENIB [Suspect]
     Dosage: ON DAYS 1-5, 8-12, 15-19 AND 22-26.
     Route: 048
     Dates: start: 20091124, end: 20091202
  2. BEVACIZUMAB [Suspect]
     Dosage: OVER 30-901 MINS ON DAYS 1 AND 15.
     Route: 042
     Dates: start: 20091124, end: 20091202

REACTIONS (2)
  - DEPRESSION [None]
  - DISEASE PROGRESSION [None]
